FAERS Safety Report 7927023 (Version 2)
Quarter: 2015Q1

REPORT INFORMATION
  Report Type: Report from Study
  Country: US (occurrence: US)
  Receive Date: 20110502
  Receipt Date: 20150331
  Transmission Date: 20150721
  Serious: No
  Sender: FDA-Public Use
  Company Number: US-ASTRAZENECA-2011SE04041

PATIENT
  Sex: Female

DRUGS (3)
  1. NEXIUM [Suspect]
     Active Substance: ESOMEPRAZOLE MAGNESIUM
     Route: 048
  2. CRESTOR [Suspect]
     Active Substance: ROSUVASTATIN CALCIUM
     Route: 048
  3. PRILOSEC [Suspect]
     Active Substance: OMEPRAZOLE MAGNESIUM
     Route: 048

REACTIONS (4)
  - Drug dose omission [Unknown]
  - Burning sensation [Unknown]
  - Malaise [Unknown]
  - Drug ineffective [Unknown]
